FAERS Safety Report 17574450 (Version 1)
Quarter: 2020Q1

REPORT INFORMATION
  Report Type: Report from Study
  Country: CO (occurrence: CO)
  Receive Date: 20200324
  Receipt Date: 20200324
  Transmission Date: 20200409
  Serious: Yes (Hospitalization)
  Sender: FDA-Public Use
  Company Number: CO-ROCHE-2501602

PATIENT
  Sex: Female

DRUGS (1)
  1. MABTHERA [Suspect]
     Active Substance: RITUXIMAB
     Indication: PRODUCT USED FOR UNKNOWN INDICATION
     Route: 065

REACTIONS (14)
  - Malaise [Unknown]
  - Musculoskeletal pain [Unknown]
  - Metastases to lung [Unknown]
  - Hodgkin^s disease [Unknown]
  - General physical health deterioration [Unknown]
  - Diarrhoea [Unknown]
  - Metastases to kidney [Unknown]
  - Metastasis [Unknown]
  - Myalgia [Unknown]
  - Spinal pain [Unknown]
  - Vomiting [Unknown]
  - Pain [Unknown]
  - Mobility decreased [Unknown]
  - Abdominal pain upper [Unknown]
